FAERS Safety Report 9378085 (Version 2)
Quarter: 2013Q3

REPORT INFORMATION
  Report Type: Spontaneous
  Country: US (occurrence: US)
  Receive Date: 20130701
  Receipt Date: 20130730
  Transmission Date: 20140515
  Serious: Yes (Hospitalization, Other)
  Sender: FDA-Public Use
  Company Number: US-GLAXOSMITHKLINE-A1028920A

PATIENT
  Age: 71 Year
  Sex: Male

DRUGS (12)
  1. VOTRIENT [Suspect]
     Indication: HEPATIC CANCER
     Dosage: 800MG PER DAY
     Route: 048
     Dates: start: 20130605
  2. ASPIRIN [Concomitant]
  3. BENAZEPRIL [Concomitant]
  4. PLAVIX [Concomitant]
  5. DOCUSATE [Concomitant]
  6. IRON SUPPLEMENTS [Concomitant]
  7. FUROSEMIDE [Concomitant]
  8. HYDRALAZINE [Concomitant]
  9. XALATAN [Concomitant]
  10. METFORMIN [Concomitant]
  11. METOPROLOL [Concomitant]
  12. SIMVASTATIN [Concomitant]

REACTIONS (1)
  - Atrial fibrillation [Recovering/Resolving]
